FAERS Safety Report 4334322-X (Version None)
Quarter: 2004Q2

REPORT INFORMATION
  Report Type: 
  Country: None (occurrence: None)
  Receive Date: 20040405
  Receipt Date: 20040323
  Transmission Date: 20050107
  Serious: Yes (Death)
  Sender: FDA-Public Use
  Company Number: HQWYE571804MAR04

PATIENT
  Age: 77 Year
  Sex: Female

DRUGS (15)
  1. CORDARONE [Suspect]
     Dosage: 200 MG (UNSPECIFIED DOSAGE AND FEQUENCY); ORAL
     Route: 048
     Dates: start: 20031206, end: 20040114
  2. ADANCOR (NICORANDIL, ) [Suspect]
     Dosage: UNSPECIFIED; ORAL
     Route: 048
     Dates: end: 20040116
  3. POTASSIUM CHLORIDE [Suspect]
     Dosage: 2 UNIT 1X PER 1 DAY; ORAL
     Route: 048
     Dates: end: 20040116
  4. GLEEVEC [Suspect]
     Indication: GASTRIC CANCER
     Dosage: 400 MG 1X PER 1 DAY; ORAL
     Route: 048
     Dates: start: 20031205, end: 20040112
  5. MEDIATENSYL (URAPIDIL, ) [Suspect]
     Dosage: UNSPECIFIED; ORAL
     Route: 048
     Dates: end: 20040116
  6. STABLON (TIANEPTINE, TABLET) [Suspect]
     Dosage: 12.5 MG (UNSPECIFIED DOSE AND FREQUENCY); ORAL
     Route: 048
     Dates: end: 20040116
  7. LASIX [Concomitant]
  8. FERROUS SULFATE TAB [Concomitant]
  9. UMULINE (INSULIN HUMAN ZINC SUSPENSION) [Concomitant]
  10. FRAXIPARIN (HEPARIN-FRACTION, CALCIUM SALT) [Concomitant]
  11. NITROGLYCERIN [Concomitant]
  12. GLUCOR (ACARBOSE) [Concomitant]
  13. MOSCONTIN (MORPHINE SULFATE) [Concomitant]
  14. BACICOLINE (CHLORAMPHENICOL/COLISTIN MESILATE SODIUM/HYDROCORTISONE AC [Concomitant]
  15. TOBREX (TOBRAMYCIN SULFATE) [Concomitant]

REACTIONS (1)
  - TOXIC EPIDERMAL NECROLYSIS [None]
